FAERS Safety Report 8491414-1 (Version None)
Quarter: 2012Q3

REPORT INFORMATION
  Report Type: 
  Country: None (occurrence: None)
  Receive Date: 20120706
  Receipt Date: 20120626
  Transmission Date: 20120928
  Serious: Yes (Other)
  Sender: FDA-Public Use
  Company Number: US-JNJFOC-20120413030

PATIENT
  Sex: Female
  Weight: 47.63 kg

DRUGS (13)
  1. SOLU-MEDROL [Concomitant]
     Indication: PREMEDICATION
     Route: 042
     Dates: start: 20120620
  2. REMICADE [Suspect]
     Route: 042
     Dates: start: 20120620
  3. ALBUTEROL [Concomitant]
     Route: 065
  4. REMICADE [Suspect]
     Route: 042
     Dates: start: 20120620
  5. ENTOCORT EC [Concomitant]
     Indication: CROHN'S DISEASE
     Route: 065
     Dates: start: 20111027, end: 20120301
  6. MULTIVITAMINS WITH IRON [Concomitant]
     Indication: ANAEMIA
     Route: 065
     Dates: start: 20111006
  7. REMICADE [Suspect]
     Indication: INFLAMMATORY BOWEL DISEASE
     Dosage: 4 INFUSION
     Route: 042
     Dates: start: 20120425
  8. REMICADE [Suspect]
     Route: 042
     Dates: start: 20111128
  9. ACETAMINOPHEN [Concomitant]
     Indication: PREMEDICATION
     Route: 065
     Dates: start: 20120620
  10. SYNTHROID [Concomitant]
     Indication: HYPOTHYROIDISM
     Route: 065
     Dates: start: 20070101
  11. REMICADE [Suspect]
     Indication: CROHN'S DISEASE
     Dosage: 4 INFUSION
     Route: 042
     Dates: start: 20120425
  12. REMICADE [Suspect]
     Route: 042
     Dates: start: 20111128
  13. BENADRYL [Concomitant]
     Indication: PREMEDICATION
     Route: 042
     Dates: start: 20120620

REACTIONS (9)
  - DYSPNOEA [None]
  - COUGH [None]
  - ARTHRALGIA [None]
  - INFUSION RELATED REACTION [None]
  - CHEST DISCOMFORT [None]
  - FLUSHING [None]
  - ABASIA [None]
  - MUSCULAR WEAKNESS [None]
  - WHEEZING [None]
